FAERS Safety Report 20757712 (Version 2)
Quarter: 2022Q2

REPORT INFORMATION
  Report Type: Report from Study
  Country: DE (occurrence: DE)
  Receive Date: 20220427
  Receipt Date: 20220525
  Transmission Date: 20220720
  Serious: Yes (Hospitalization, Other)
  Sender: FDA-Public Use
  Company Number: DE-TAKEDA-DE201917394

PATIENT
  Age: 63 Year
  Sex: Male
  Weight: 62 kg

DRUGS (23)
  1. TEDUGLUTIDE [Suspect]
     Active Substance: TEDUGLUTIDE
     Indication: Short-bowel syndrome
     Dosage: 3.1 MILLIGRAM, QD
     Route: 042
     Dates: end: 20200729
  2. TEDUGLUTIDE [Suspect]
     Active Substance: TEDUGLUTIDE
     Indication: Short-bowel syndrome
     Dosage: 3.1 MILLIGRAM, QD
     Route: 042
     Dates: end: 20200729
  3. TEDUGLUTIDE [Suspect]
     Active Substance: TEDUGLUTIDE
     Indication: Short-bowel syndrome
     Dosage: 3.1 MILLIGRAM, QD
     Route: 042
     Dates: end: 20200729
  4. TEDUGLUTIDE [Suspect]
     Active Substance: TEDUGLUTIDE
     Indication: Short-bowel syndrome
     Dosage: 3.1 MILLIGRAM, QD
     Route: 042
     Dates: end: 20200729
  5. CEFUROXIME [Concomitant]
     Active Substance: CEFUROXIME
     Indication: Infection
     Dosage: UNK
     Route: 065
  6. METRONIDAZOLE [Concomitant]
     Active Substance: METRONIDAZOLE
     Indication: Infection
     Dosage: UNK
     Route: 065
  7. LORATADINE [Concomitant]
     Active Substance: LORATADINE
     Indication: Product used for unknown indication
     Dosage: UNK
     Route: 065
  8. OPTIDERM F [Concomitant]
     Indication: Prurigo
     Dosage: UNK
     Route: 065
  9. ESPUMISAN [SIMETICONE] [Concomitant]
     Indication: Product used for unknown indication
     Dosage: UNK
     Route: 065
  10. IMODIUM [Concomitant]
     Active Substance: LOPERAMIDE HYDROCHLORIDE
     Indication: Product used for unknown indication
     Dosage: UNK
     Route: 065
  11. CALCIUM\CHOLECALCIFEROL [Concomitant]
     Active Substance: CALCIUM\CHOLECALCIFEROL
     Indication: Product used for unknown indication
     Dosage: UNK
     Route: 065
  12. CETIDEX [Concomitant]
     Indication: Product used for unknown indication
     Dosage: UNK
     Route: 065
  13. SELENASE [SODIUM SELENATE] [Concomitant]
     Indication: Product used for unknown indication
     Dosage: UNK
     Route: 065
  14. NOVALGIN (METAMIZOLE SODIUM) [Concomitant]
     Active Substance: METAMIZOLE SODIUM
     Indication: Product used for unknown indication
     Dosage: UNK
     Route: 065
  15. TILICOMP [Concomitant]
     Indication: Product used for unknown indication
     Dosage: UNK
     Route: 065
  16. METHOTREXATE [Concomitant]
     Active Substance: METHOTREXATE
     Indication: Product used for unknown indication
     Dosage: UNK
     Route: 065
  17. FOLIC ACID [Concomitant]
     Active Substance: FOLIC ACID
     Indication: Product used for unknown indication
     Dosage: UNK
     Route: 065
  18. PANTOPRAZOLE [Concomitant]
     Active Substance: PANTOPRAZOLE
     Indication: Product used for unknown indication
     Dosage: UNK
     Route: 065
  19. PREDNISOLONE [Concomitant]
     Active Substance: PREDNISOLONE
     Indication: Product used for unknown indication
     Dosage: UNK
     Route: 065
  20. IRON [Concomitant]
     Active Substance: IRON
     Indication: Normochromic normocytic anaemia
     Dosage: UNK
     Route: 042
     Dates: start: 202007, end: 202008
  21. FOLIC ACID [Concomitant]
     Active Substance: FOLIC ACID
     Indication: Normochromic normocytic anaemia
     Dosage: UNK
     Route: 048
     Dates: start: 202007, end: 202008
  22. DOXYCYCLINE [Concomitant]
     Active Substance: DOXYCYCLINE
     Indication: Pemphigoid
     Dosage: 200 MILLIGRAM, QD
     Route: 048
     Dates: start: 20200615
  23. CEFEPIME HYDROCHLORIDE [Concomitant]
     Active Substance: CEFEPIME HYDROCHLORIDE
     Indication: Device related sepsis
     Dosage: 2.38 GRAM, TID
     Route: 048
     Dates: start: 20200723, end: 20200804

REACTIONS (2)
  - Pemphigoid [Not Recovered/Not Resolved]
  - Haematuria [Recovered/Resolved]

NARRATIVE: CASE EVENT DATE: 20170310
